FAERS Safety Report 10390930 (Version 2)
Quarter: 2014Q3

REPORT INFORMATION
  Report Type: Spontaneous
  Country: US (occurrence: US)
  Receive Date: 20140818
  Receipt Date: 20140904
  Transmission Date: 20150326
  Serious: No
  Sender: FDA-Public Use
  Company Number: US-PFIZER INC-2014228097

PATIENT
  Age: 69 Year
  Sex: Male

DRUGS (1)
  1. INLYTA [Suspect]
     Active Substance: AXITINIB
     Dosage: UNK

REACTIONS (10)
  - Headache [Unknown]
  - Rhinorrhoea [Unknown]
  - Dysphonia [Unknown]
  - Dry eye [Unknown]
  - Pain [Unknown]
  - Dry mouth [Unknown]
  - Diarrhoea [Unknown]
  - Nasal oedema [Unknown]
  - Gingival bleeding [Unknown]
  - Arthralgia [Unknown]
